FAERS Safety Report 6725882-X (Version None)
Quarter: 2010Q2

REPORT INFORMATION
  Report Type: 
  Country: None (occurrence: None)
  Receive Date: 20100514
  Receipt Date: 20100507
  Transmission Date: 20101027
  Serious: Yes (Hospitalization, Other)
  Sender: FDA-Public Use
  Company Number: PHHY2010ES29613

PATIENT
  Age: 76 Year
  Sex: Male

DRUGS (6)
  1. STALEVO 100 [Suspect]
     Indication: PARKINSON'S DISEASE
     Dosage: 500 MG/12.5 MG/200 MG
     Route: 048
     Dates: start: 20081125, end: 20090220
  2. SIMVASTATIN [Concomitant]
     Dosage: 20 MG, DAILY
     Route: 048
     Dates: start: 20061106
  3. OMEPRAZOLE [Concomitant]
     Dosage: 20 MG DAILY
     Route: 048
  4. GLYBURIDE [Concomitant]
     Dosage: 5 MG DAILY
     Route: 048
  5. GLUMIDA [Concomitant]
     Dosage: 300 MG DAILY
     Route: 048
  6. TICLID [Concomitant]
     Dosage: UNK
     Route: 048

REACTIONS (5)
  - BUNDLE BRANCH BLOCK LEFT [None]
  - DIASTOLIC DYSFUNCTION [None]
  - ORTHOSTATIC HYPOTENSION [None]
  - SYNCOPE [None]
  - VENTRICULAR HYPERTROPHY [None]
